FAERS Safety Report 6699278-3 (Version None)
Quarter: 2010Q2

REPORT INFORMATION
  Report Type: 
  Country: None (occurrence: None)
  Receive Date: 20100427
  Receipt Date: 20100421
  Transmission Date: 20101027
  Serious: Yes (Other)
  Sender: FDA-Public Use
  Company Number: PHHY2010PT25021

PATIENT
  Age: 56 Year
  Sex: Male

DRUGS (1)
  1. EUCREAS [Suspect]
     Dosage: UNK

REACTIONS (2)
  - HYPERGLYCAEMIA [None]
  - OVERDOSE [None]
